FAERS Safety Report 5866426-4 (Version None)
Quarter: 2008Q3

REPORT INFORMATION
  Report Type: 
  Country: None (occurrence: None)
  Receive Date: 20080901
  Receipt Date: 20080730
  Transmission Date: 20090109
  Serious: No
  Sender: FDA-Public Use
  Company Number: US-BAYER-200830104NA

PATIENT
  Sex: Female
  Weight: 57 kg

DRUGS (2)
  1. YAZ [Suspect]
     Indication: CONTRACEPTION
     Route: 048
     Dates: start: 20080101
  2. PHENTRAZINE [Concomitant]
     Indication: WEIGHT DECREASED
     Dates: start: 20080722

REACTIONS (1)
  - MENORRHAGIA [None]
